FAERS Safety Report 6589131-8 (Version None)
Quarter: 2010Q1

REPORT INFORMATION
  Report Type: 
  Country: None (occurrence: None)
  Receive Date: 20100202
  Receipt Date: 20091118
  Transmission Date: 20100710
  Serious: Yes (Hospitalization)
  Sender: FDA-Public Use
  Company Number: WAES 0911USA03102

PATIENT
  Age: 53 Year
  Sex: Female

DRUGS (6)
  1. JANUMET [Suspect]
     Indication: DIABETES MELLITUS
     Dosage: PO
     Route: 048
  2. ALLEGRA [Concomitant]
  3. SYNTHROID [Concomitant]
  4. VASOTEC [Concomitant]
  5. ZOCOR [Concomitant]
  6. ATENOLOL [Concomitant]

REACTIONS (1)
  - PANCREATITIS [None]
